FAERS Safety Report 12190076 (Version 1)
Quarter: 2016Q1

REPORT INFORMATION
  Report Type: Report from Study
  Country: DE (occurrence: DE)
  Receive Date: 20160318
  Receipt Date: 20160318
  Transmission Date: 20160526
  Serious: Yes (Hospitalization)
  Sender: FDA-Public Use
  Company Number: DE-ROCHE-1727937

PATIENT
  Age: 61 Year
  Sex: Male
  Weight: 67 kg

DRUGS (6)
  1. RITUXIMAB [Suspect]
     Active Substance: RITUXIMAB
     Indication: DIFFUSE LARGE B-CELL LYMPHOMA REFRACTORY
     Dosage: ON 16/FEB/2016, RECEIVED LAST DOSE PRIOR TO SAE?ON DAY 3-6.
     Route: 042
     Dates: start: 20160120
  2. TEMSIROLIMUS [Suspect]
     Active Substance: TEMSIROLIMUS
     Indication: DIFFUSE LARGE B-CELL LYMPHOMA REFRACTORY
     Dosage: 25 MG/INFUSION, ON DAY 1 AND 8?ON 23/FEB/2016, RECEIVED LAST DOSE PRIOR TO SAE
     Route: 042
     Dates: start: 20160119
  3. CISPLATINE [Suspect]
     Active Substance: CISPLATIN
     Indication: DIFFUSE LARGE B-CELL LYMPHOMA REFRACTORY
     Dosage: ON DAY 3?ON 21/JAN/2016, RECEIVED LAST DOSE PRIOR TO SAE
     Route: 042
     Dates: start: 20160121
  4. CARBOPLATIN. [Suspect]
     Active Substance: CARBOPLATIN
     Indication: RENAL IMPAIRMENT
     Route: 042
     Dates: start: 20160217
  5. CYTARABINE. [Suspect]
     Active Substance: CYTARABINE
     Indication: DIFFUSE LARGE B-CELL LYMPHOMA REFRACTORY
     Dosage: 3780 M 2X, ON DAY 4?ON 18/FEB/2016, RECEIVED LAST DOSE PRIOR TO SAE
     Route: 042
     Dates: start: 20160122
  6. DEXAMETHASONE. [Suspect]
     Active Substance: DEXAMETHASONE
     Indication: DIFFUSE LARGE B-CELL LYMPHOMA REFRACTORY
     Dosage: ON DAY 3-6?ON 20/FEB/2016, RECEIVED LAST DOSE PRIOR TO SAE
     Route: 042
     Dates: start: 20160121

REACTIONS (1)
  - Epistaxis [Recovered/Resolved]

NARRATIVE: CASE EVENT DATE: 20160301
